FAERS Safety Report 17264907 (Version 4)
Quarter: 2020Q1

REPORT INFORMATION
  Report Type: Report from Study
  Country: PL (occurrence: PL)
  Receive Date: 20200113
  Receipt Date: 20200227
  Transmission Date: 20200409
  Serious: No
  Sender: FDA-Public Use
  Company Number: PL-EXELIXIS-XL18420026636

PATIENT
  Age: 71 Year
  Sex: Male
  Weight: 104 kg

DRUGS (2)
  1. CABOZANTINIB [Suspect]
     Active Substance: CABOZANTINIB
     Indication: RENAL CELL CARCINOMA
     Dosage: 60 MG, QD
     Route: 048
     Dates: start: 20191127, end: 20191229
  2. CABOZANTINIB [Suspect]
     Active Substance: CABOZANTINIB
     Dosage: 40 MG, QD
     Route: 048
     Dates: start: 20200116, end: 20200216

REACTIONS (3)
  - Altered state of consciousness [Recovered/Resolved]
  - Blood thyroid stimulating hormone abnormal [Recovering/Resolving]
  - Thrombocytopenia [Not Recovered/Not Resolved]

NARRATIVE: CASE EVENT DATE: 20191224
